FAERS Safety Report 24028895 (Version 1)
Quarter: 2024Q2

REPORT INFORMATION
  Report Type: Spontaneous
  Country: US (occurrence: US)
  Receive Date: 20240628
  Receipt Date: 20240628
  Transmission Date: 20240716
  Serious: Yes (Other)
  Sender: FDA-Public Use
  Company Number: US-Vifor (International) Inc.-VIT-2024-04121

PATIENT
  Age: 18 Year
  Sex: Female

DRUGS (12)
  1. MIRCERA [Suspect]
     Active Substance: METHOXY POLYETHYLENE GLYCOL-EPOETIN BETA
     Indication: Chronic kidney disease
     Route: 058
     Dates: start: 20200115, end: 20200426
  2. MIRCERA [Suspect]
     Active Substance: METHOXY POLYETHYLENE GLYCOL-EPOETIN BETA
     Route: 058
     Dates: start: 20200426, end: 20201223
  3. MIRCERA [Suspect]
     Active Substance: METHOXY POLYETHYLENE GLYCOL-EPOETIN BETA
     Route: 058
     Dates: start: 20221227, end: 20230105
  4. MIRCERA [Suspect]
     Active Substance: METHOXY POLYETHYLENE GLYCOL-EPOETIN BETA
     Route: 058
     Dates: start: 20230123, end: 20230418
  5. MIRCERA [Suspect]
     Active Substance: METHOXY POLYETHYLENE GLYCOL-EPOETIN BETA
     Route: 058
     Dates: start: 20230421
  6. DESFERAL [Suspect]
     Active Substance: DEFEROXAMINE MESYLATE
     Indication: Product used for unknown indication
  7. CYCLOSPORINE [Suspect]
     Active Substance: CYCLOSPORINE
     Indication: Product used for unknown indication
  8. AMLODIPINE [Suspect]
     Active Substance: AMLODIPINE BESYLATE
     Indication: Product used for unknown indication
  9. PREDNISONE [Suspect]
     Active Substance: PREDNISONE
     Indication: Product used for unknown indication
  10. HYDROCORTISONE [Suspect]
     Active Substance: HYDROCORTISONE\HYDROCORTISONE ACETATE
     Indication: Product used for unknown indication
  11. MYCOPHENOLIC ACID [Suspect]
     Active Substance: MYCOPHENOLIC ACID
     Indication: Product used for unknown indication
  12. NORETHINDRONE [Suspect]
     Active Substance: NORETHINDRONE
     Indication: Product used for unknown indication

REACTIONS (1)
  - Aplasia pure red cell [Unknown]

NARRATIVE: CASE EVENT DATE: 20230101
